FAERS Safety Report 6640639-6 (Version None)
Quarter: 2010Q1

REPORT INFORMATION
  Report Type: 
  Country: None (occurrence: None)
  Receive Date: 20100318
  Receipt Date: 20100305
  Transmission Date: 20100710
  Serious: Yes (Hospitalization)
  Sender: FDA-Public Use
  Company Number: US-ELI_LILLY_AND_COMPANY-US200907000787

PATIENT
  Sex: Female
  Weight: 86.168 kg

DRUGS (5)
  1. BYETTA [Suspect]
     Dosage: 10 UG, 2/D
     Route: 065
     Dates: start: 20060101, end: 20070101
  2. IBUPROFEN [Concomitant]
     Dosage: 600 MG, 3/D
  3. CRESTOR [Concomitant]
     Dosage: 5 MG, DAILY (1/D)
  4. AVANDAMET [Concomitant]
     Dosage: 1500 MG, 3/D
  5. SPIRONOLACTONE W/ HYDROCHLOROTHIAZIDE [Concomitant]
     Dosage: 25 MG, DAILY (1/D)

REACTIONS (12)
  - ATELECTASIS [None]
  - BLOOD INSULIN DECREASED [None]
  - BLOOD POTASSIUM DECREASED [None]
  - BOWEL MOVEMENT IRREGULARITY [None]
  - CHOLANGITIS [None]
  - CHOLELITHIASIS [None]
  - DYSPEPSIA [None]
  - HELICOBACTER TEST POSITIVE [None]
  - PANCREATIC ENZYMES DECREASED [None]
  - PANCREATIC PSEUDOCYST [None]
  - PANCREATITIS ACUTE [None]
  - PLEURAL EFFUSION [None]
